FAERS Safety Report 4576807-7 (Version None)
Quarter: 2005Q1

REPORT INFORMATION
  Report Type: 
  Country: None (occurrence: None)
  Receive Date: 20050210
  Receipt Date: 20050201
  Transmission Date: 20050727
  Serious: Yes (Life-Threatening)
  Sender: FDA-Public Use
  Company Number: FI-BRISTOL-MYERS SQUIBB COMPANY-12843652

PATIENT
  Age: 61 Year
  Sex: Female

DRUGS (4)
  1. TREXAN (ORION) [Suspect]
     Indication: RHEUMATOID ARTHRITIS
     Route: 048
     Dates: start: 20010101, end: 20041102
  2. ENBREL [Suspect]
     Indication: RHEUMATOID ARTHRITIS
     Route: 058
     Dates: start: 20040224, end: 20041102
  3. SALAZOPYRIN [Concomitant]
     Indication: RHEUMATOID ARTHRITIS
     Dosage: 2X2
     Dates: start: 20010101
  4. OXIKLORIN [Concomitant]
     Indication: RHEUMATOID ARTHRITIS
     Dates: start: 20010101

REACTIONS (1)
  - OVARIAN EPITHELIAL CANCER [None]
